FAERS Safety Report 9571537 (Version 1)
Quarter: 2013Q4

REPORT INFORMATION
  Report Type: Report from Study
  Country: US (occurrence: US)
  Receive Date: 20131001
  Receipt Date: 20131001
  Transmission Date: 20140711
  Serious: Yes (Other)
  Sender: FDA-Public Use
  Company Number: US-ROCHE-1280823

PATIENT
  Sex: Female

DRUGS (7)
  1. AVASTIN [Suspect]
     Indication: AGE-RELATED MACULAR DEGENERATION
     Route: 065
  2. AVASTIN [Suspect]
     Indication: OFF LABEL USE
  3. AMLODIPINE [Concomitant]
     Route: 065
  4. B COMPLEX VITAMIN [Concomitant]
  5. BENICAR [Concomitant]
     Route: 048
  6. LABETALOL [Concomitant]
     Route: 048
  7. SYSTANE [Concomitant]
     Dosage: 0.4-0.3% 1 DROPS, AS REQUIRED, IN BOTH EYES
     Route: 065

REACTIONS (4)
  - Eye pruritus [Unknown]
  - Macular oedema [Unknown]
  - Lacrimation increased [Unknown]
  - Choroidal neovascularisation [Unknown]
